FAERS Safety Report 24123572 (Version 1)
Quarter: 2024Q3

REPORT INFORMATION
  Report Type: Spontaneous
  Country: US (occurrence: US)
  Receive Date: 20240723
  Receipt Date: 20240723
  Transmission Date: 20241017
  Serious: No
  Sender: OTSUKA
  Company Number: US-OTSUKA-2024_005715

PATIENT
  Age: 48 Year
  Sex: Female

DRUGS (2)
  1. REXULTI [Suspect]
     Active Substance: BREXPIPRAZOLE
     Indication: Generalised anxiety disorder
     Dosage: 1 MG, QD
     Route: 048
     Dates: start: 20240221, end: 20240227
  2. REXULTI [Suspect]
     Active Substance: BREXPIPRAZOLE
     Dosage: 1 MG (FOR 4 DAYS)
     Route: 065

REACTIONS (5)
  - Hunger [Recovered/Resolved]
  - Irritability [Recovered/Resolved]
  - Blood glucose increased [Unknown]
  - Tremor [Recovered/Resolved]
  - Product use in unapproved indication [Unknown]

NARRATIVE: CASE EVENT DATE: 20240221
